FAERS Safety Report 6983125-6 (Version None)
Quarter: 2010Q3

REPORT INFORMATION
  Report Type: 
  Country: None (occurrence: None)
  Receive Date: 20100914
  Receipt Date: 20100604
  Transmission Date: 20110219
  Serious: No
  Sender: FDA-Public Use
  Company Number: US-PFIZER INC-2010071442

PATIENT
  Sex: Female

DRUGS (1)
  1. LYRICA [Suspect]
     Dosage: 300 MG TWO CAPSULES

REACTIONS (3)
  - DRUG DISPENSING ERROR [None]
  - FATIGUE [None]
  - VOMITING [None]
